FAERS Safety Report 8004312-4 (Version None)
Quarter: 2011Q4

REPORT INFORMATION
  Report Type: 
  Country: None (occurrence: None)
  Receive Date: 20111223
  Receipt Date: 20111220
  Transmission Date: 20120403
  Serious: No
  Sender: FDA-Public Use
  Company Number: US-BIOGENIDEC-2011BI047996

PATIENT
  Age: 60 Year
  Sex: Female

DRUGS (1)
  1. TYSABRI [Suspect]
     Indication: MULTIPLE SCLEROSIS
     Route: 042
     Dates: start: 20071003, end: 20111028

REACTIONS (8)
  - MUSCULOSKELETAL STIFFNESS [None]
  - FATIGUE [None]
  - MULTIPLE SCLEROSIS [None]
  - GAIT DISTURBANCE [None]
  - FLUSHING [None]
  - ASTHENIA [None]
  - NAUSEA [None]
  - VOMITING [None]
